FAERS Safety Report 19197161 (Version 1)
Quarter: 2021Q2

REPORT INFORMATION
  Report Type: Other
  Country: CA (occurrence: CA)
  Receive Date: 20210430
  Receipt Date: 20210430
  Transmission Date: 20210717
  Serious: Yes (Life-Threatening, Hospitalization, Other)
  Sender: FDA-Public Use
  Company Number: CA-CYCLE PHARMACEUTICALS LTD-2021-CYC-000009

PATIENT
  Sex: Female
  Weight: 123 kg

DRUGS (12)
  1. NITISINONE [Suspect]
     Active Substance: NITISINONE
     Dosage: 55 MG, 1 EVERY 1 DAYS
     Route: 048
  2. NITISINONE [Suspect]
     Active Substance: NITISINONE
     Dosage: 65 MG, 1 EVERY 1 DAYS
     Route: 048
  3. NITISINONE [Suspect]
     Active Substance: NITISINONE
     Dosage: 70 MG, 1 EVERY 1 DAYS
     Route: 048
  4. QUETIAPINE. [Concomitant]
     Active Substance: QUETIAPINE
     Indication: PRODUCT USED FOR UNKNOWN INDICATION
     Route: 065
  5. NITISINONE [Suspect]
     Active Substance: NITISINONE
     Indication: TYROSINAEMIA
     Dosage: 60 MG, 1 EVERY 1 DAYS
     Route: 048
  6. NITISINONE [Suspect]
     Active Substance: NITISINONE
     Dosage: 60 MG, 1 EVERY 1 DAYS
     Route: 048
  7. NITISINONE [Suspect]
     Active Substance: NITISINONE
     Dosage: 75 MG, 1 EVERY 1 DAYS
     Route: 048
  8. METHYLPHENIDATE. [Concomitant]
     Active Substance: METHYLPHENIDATE
     Indication: PRODUCT USED FOR UNKNOWN INDICATION
     Route: 065
  9. NITISINONE [Suspect]
     Active Substance: NITISINONE
     Dosage: 52 MG, 1 EVERY 1 DAYS
     Route: 048
  10. CELECOXIB. [Concomitant]
     Active Substance: CELECOXIB
     Indication: PRODUCT USED FOR UNKNOWN INDICATION
     Route: 065
  11. CITALOPRAM [Concomitant]
     Active Substance: CITALOPRAM HYDROBROMIDE
     Indication: PRODUCT USED FOR UNKNOWN INDICATION
     Route: 065
  12. NORETHINDRONE                      /00044901/ [Concomitant]
     Active Substance: NORETHINDRONE
     Indication: PRODUCT USED FOR UNKNOWN INDICATION
     Dosage: UNK
     Route: 065

REACTIONS (2)
  - Acute myeloid leukaemia [Unknown]
  - Incorrect dosage administered [Unknown]
